FAERS Safety Report 8354049-7 (Version None)
Quarter: 2012Q2

REPORT INFORMATION
  Report Type: 
  Country: None (occurrence: None)
  Receive Date: 20120511
  Receipt Date: 20110106
  Transmission Date: 20120825
  Serious: No
  Sender: FDA-Public Use
  Company Number: US-TEVA-2011000095

PATIENT
  Sex: Female
  Weight: 54.48 kg

DRUGS (2)
  1. NUVIGIL [Suspect]
     Indication: SLEEP APNOEA SYNDROME
  2. NUVIGIL [Suspect]
     Indication: NARCOLEPSY
     Route: 048
     Dates: start: 20100701, end: 20100701

REACTIONS (4)
  - NAUSEA [None]
  - DIZZINESS [None]
  - HEADACHE [None]
  - FEELING JITTERY [None]
